FAERS Safety Report 5216739-4 (Version None)
Quarter: 2007Q1

REPORT INFORMATION
  Report Type: 
  Country: None (occurrence: None)
  Receive Date: 20070119
  Receipt Date: 20070111
  Transmission Date: 20070707
  Serious: Yes (Other)
  Sender: FDA-Public Use
  Company Number: CAP07000015

PATIENT
  Age: 74 Year
  Sex: Female

DRUGS (3)
  1. DIDROCAL(ETIDRONATE DISODIUM/CALCIUM CARBONATE CYCLICAL) TABLET 400/12 [Suspect]
     Indication: DRUG USE FOR UNKNOWN INDICATION
     Dosage: 1 TABLET ONCE DAILY, ORAL
     Route: 048
     Dates: start: 20050531, end: 20060101
  2. ACTONEL [Concomitant]
  3. TRAVATAN [Concomitant]

REACTIONS (1)
  - LEUKAEMIA [None]
